FAERS Safety Report 5849639-7 (Version None)
Quarter: 2008Q3

REPORT INFORMATION
  Report Type: 
  Country: None (occurrence: None)
  Receive Date: 20080815
  Receipt Date: 20080807
  Transmission Date: 20090109
  Serious: Yes (Other)
  Sender: FDA-Public Use
  Company Number: 2008SP016104

PATIENT
  Sex: Female

DRUGS (10)
  1. PEG-INTRON [Suspect]
     Indication: HEPATITIS C
     Dosage: 50 MCG QW SC
     Route: 058
     Dates: start: 20000101, end: 20080801
  2. PEG-INTRON [Suspect]
     Indication: LIVER TRANSPLANT
     Dosage: 50 MCG QW SC
     Route: 058
     Dates: start: 20000101, end: 20080801
  3. PROGRAF [Concomitant]
  4. MOLSIDOMIN [Concomitant]
  5. UDC [Concomitant]
  6. LEVOTHYROXINE SODIUM [Concomitant]
  7. REMERGIL [Concomitant]
  8. MAGNESIUM SULFATE [Concomitant]
  9. ACETYLCYSTEINE [Concomitant]
  10. TOREM [Concomitant]

REACTIONS (4)
  - PNEUMONIA [None]
  - PULMONARY OEDEMA [None]
  - PYREXIA [None]
  - URINARY TRACT INFECTION [None]
